FAERS Safety Report 4352595-4 (Version None)
Quarter: 2004Q2

REPORT INFORMATION
  Report Type: 
  Country: None (occurrence: None)
  Receive Date: 20040503
  Receipt Date: 20040503
  Transmission Date: 20050107
  Serious: Yes (Life-Threatening, Other)
  Sender: FDA-Public Use
  Company Number: None

PATIENT
  Age: 22 Year
  Sex: Female
  Weight: 68.0396 kg

DRUGS (4)
  1. PAXIL [Suspect]
     Indication: DEPRESSION
     Dosage: 1 CAPSUL AT BEDTIME ORAL
     Route: 048
     Dates: start: 19960601, end: 19960601
  2. BUSPIRONE [Suspect]
     Indication: ANXIETY DISORDER
     Dosage: 1 TABLET EVERY MORN ORAL
     Route: 048
     Dates: start: 19960301, end: 19960515
  3. ELAVIL [Concomitant]
  4. XANAX [Concomitant]

REACTIONS (15)
  - ATAXIA [None]
  - CHILLS [None]
  - DISTURBANCE IN ATTENTION [None]
  - HALLUCINATION [None]
  - IMMOBILIZATION PROLONGED [None]
  - INCONTINENCE [None]
  - MEDICATION ERROR [None]
  - MUSCLE SPASMS [None]
  - MYDRIASIS [None]
  - NAUSEA [None]
  - SEROTONIN SYNDROME [None]
  - TACHYCARDIA [None]
  - TACHYPNOEA [None]
  - THINKING ABNORMAL [None]
  - TREMOR [None]
